FAERS Safety Report 15858625 (Version 1)
Quarter: 2019Q1

REPORT INFORMATION
  Report Type: Spontaneous
  Country: AU (occurrence: AU)
  Receive Date: 20190123
  Receipt Date: 20190123
  Transmission Date: 20190417
  Serious: Yes (Other)
  Sender: FDA-Public Use
  Company Number: AU-ELI_LILLY_AND_COMPANY-AU201901008364

PATIENT
  Age: 30 Year
  Sex: Male

DRUGS (8)
  1. BENZTROPINE MESYLATE. [Concomitant]
     Active Substance: BENZTROPINE MESYLATE
     Indication: PRODUCT USED FOR UNKNOWN INDICATION
  2. OLANZAPINE. [Suspect]
     Active Substance: OLANZAPINE
     Indication: SCHIZOPHRENIA
     Dosage: UNK, UNKNOWN
     Route: 065
  3. ZUCLOPENTHIXOL [Concomitant]
     Active Substance: ZUCLOPENTHIXOL
     Indication: PRODUCT USED FOR UNKNOWN INDICATION
  4. CLOZARIL [Suspect]
     Active Substance: CLOZAPINE
     Indication: SCHIZOPHRENIA
     Dosage: 250 MG, UNKNOWN
     Route: 048
     Dates: start: 20080522
  5. RAMIPRIL. [Concomitant]
     Active Substance: RAMIPRIL
     Indication: PRODUCT USED FOR UNKNOWN INDICATION
  6. LITHIUM. [Concomitant]
     Active Substance: LITHIUM
     Indication: PRODUCT USED FOR UNKNOWN INDICATION
  7. HALOPERIDOL DECANOATE. [Suspect]
     Active Substance: HALOPERIDOL DECANOATE
     Indication: SCHIZOPHRENIA
     Dosage: 50 MG, UNKNOWN
     Route: 048
     Dates: start: 20160206
  8. HALOPERIDOL. [Suspect]
     Active Substance: HALOPERIDOL
     Indication: SCHIZOPHRENIA
     Dosage: 5 MG, UNKNOWN
     Route: 048

REACTIONS (17)
  - Cardiomyopathy [Recovering/Resolving]
  - Blood uric acid increased [Unknown]
  - Blood bilirubin increased [Not Recovered/Not Resolved]
  - Tachycardia [Unknown]
  - Blood glucose increased [Unknown]
  - Blood creatinine increased [Not Recovered/Not Resolved]
  - Psychiatric decompensation [Unknown]
  - Ejection fraction decreased [Recovered/Resolved]
  - Globulins decreased [Unknown]
  - Blood lactate dehydrogenase increased [Unknown]
  - Blood sodium decreased [Unknown]
  - Aspartate aminotransferase increased [Not Recovered/Not Resolved]
  - Blood bicarbonate decreased [Unknown]
  - Echocardiogram abnormal [Unknown]
  - Cardiac disorder [Unknown]
  - Bilirubin conjugated increased [Not Recovered/Not Resolved]
  - Left ventricular dysfunction [Recovered/Resolved]
